FAERS Safety Report 20548681 (Version 1)
Quarter: 2022Q1

REPORT INFORMATION
  Report Type: Spontaneous
  Country: US (occurrence: US)
  Receive Date: 20220303
  Receipt Date: 20220303
  Transmission Date: 20220423
  Serious: No
  Sender: FDA-Public Use
  Company Number: US-ALLERGAN-2122007US

PATIENT
  Age: 71 Year
  Sex: Male
  Weight: 81.633 kg

DRUGS (2)
  1. RESTASIS [Suspect]
     Active Substance: CYCLOSPORINE
     Indication: Dry eye
     Dosage: UNK UNK, QD
     Route: 047
     Dates: end: 202105
  2. RESTASIS [Suspect]
     Active Substance: CYCLOSPORINE
     Dosage: UNK UNK, BID
     Route: 047
     Dates: start: 20210521

REACTIONS (3)
  - Off label use [Unknown]
  - Hypersensitivity [Unknown]
  - Eye irritation [Recovering/Resolving]

NARRATIVE: CASE EVENT DATE: 20210501
